FAERS Safety Report 5875958-4 (Version None)
Quarter: 2008Q3

REPORT INFORMATION
  Report Type: 
  Country: None (occurrence: None)
  Receive Date: 20080905
  Receipt Date: 20080825
  Transmission Date: 20090109
  Serious: Yes (Hospitalization)
  Sender: FDA-Public Use
  Company Number: DSA_32346_2008

PATIENT
  Sex: Male

DRUGS (3)
  1. TAVOR   (TAVOR - LORAZPAM) (NOT SPECIFIED) [Suspect]
     Dosage: (4.5 MG 1X NOT THE PRESCRIBED AMOUNT ORAL)
     Route: 048
     Dates: start: 20080822, end: 20080822
  2. LAMICTAL (LAMICTAL - LAMOTRIGINE) [Suspect]
     Dosage: 75 MG 1X NOT PRESCRIBED AMOUNT ORAL)
     Route: 048
     Dates: start: 20080822, end: 20080822
  3. RISPERIDONE [Suspect]
     Dates: start: 20080822

REACTIONS (4)
  - DEPRESSED LEVEL OF CONSCIOUSNESS [None]
  - MULTIPLE DRUG OVERDOSE INTENTIONAL [None]
  - SUICIDE ATTEMPT [None]
  - TACHYCARDIA [None]
